FAERS Safety Report 11816975 (Version 2)
Quarter: 2017Q2

REPORT INFORMATION
  Report Type: Spontaneous
  Country: US (occurrence: US)
  Receive Date: 20151210
  Receipt Date: 20170412
  Transmission Date: 20170829
  Serious: Yes (Other)
  Sender: FDA-Public Use
  Company Number: US-JNJFOC-20150700998

PATIENT
  Age: 29 Year
  Sex: Male

DRUGS (2)
  1. RISPERDAL [Suspect]
     Active Substance: RISPERIDONE
     Indication: DEPRESSION
     Route: 048
     Dates: start: 200810
  2. RISPERDAL [Suspect]
     Active Substance: RISPERIDONE
     Indication: DEPRESSION
     Route: 048
     Dates: start: 200404

REACTIONS (5)
  - Gynaecomastia [Unknown]
  - Obesity [Unknown]
  - Product use in unapproved indication [Unknown]
  - Off label use [Unknown]
  - Libido decreased [Unknown]

NARRATIVE: CASE EVENT DATE: 200404
